FAERS Safety Report 8503603-8 (Version None)
Quarter: 2012Q3

REPORT INFORMATION
  Report Type: 
  Country: None (occurrence: None)
  Receive Date: 20120711
  Receipt Date: 20120703
  Transmission Date: 20120928
  Serious: Yes (Hospitalization)
  Sender: FDA-Public Use
  Company Number: US-SANOFI-AVENTIS-2012SA047415

PATIENT
  Age: 50 Year
  Sex: Female
  Weight: 71.5 kg

DRUGS (18)
  1. BLINDED THERAPY [Suspect]
     Route: 042
     Dates: start: 20120228
  2. DOCETAXEL [Suspect]
     Route: 042
     Dates: start: 20120228
  3. ATROPINE SULFATE/DIPHENOXYLATE HYDROCHLORIDE [Concomitant]
  4. MECLIZINE [Concomitant]
     Route: 048
  5. OMEPRAZOLE [Concomitant]
     Route: 048
  6. PROCHLORPERAZINE MALEATE [Concomitant]
     Route: 048
  7. CITALOPRAM HYDROBROMIDE [Concomitant]
     Route: 048
  8. LOPERAMIDE [Concomitant]
     Route: 048
  9. MAGNESIUM OXIDE [Concomitant]
     Route: 048
  10. TRASTUZUMAB [Suspect]
     Route: 042
     Dates: start: 20120228
  11. CIPROFLOXACIN [Concomitant]
     Dosage: OPTHALMIC SOLUTION
  12. LORAZEPAM [Concomitant]
     Route: 048
  13. PREDNISOLONE ACETATE [Concomitant]
  14. SPIRONOLACTONE [Concomitant]
     Route: 048
  15. TRAMADOL HCL [Concomitant]
     Route: 048
  16. CARBOPLATIN [Suspect]
     Route: 042
     Dates: start: 20120228
  17. DEXAMETHASONE [Concomitant]
     Route: 048
  18. SIMVASTATIN [Concomitant]
     Route: 048

REACTIONS (2)
  - HYPONATRAEMIA [None]
  - ASTHENIA [None]
